FAERS Safety Report 21424803 (Version 1)
Quarter: 2022Q4

REPORT INFORMATION
  Report Type: Spontaneous
  Country: US (occurrence: US)
  Receive Date: 20221008
  Receipt Date: 20221008
  Transmission Date: 20230112
  Serious: No
  Sender: FDA-Public Use
  Company Number: US-BRISTOL-MYERS SQUIBB COMPANY-2022-117212

PATIENT

DRUGS (2)
  1. POMALYST [Suspect]
     Active Substance: POMALIDOMIDE
     Indication: Product used for unknown indication
     Route: 065
  2. ABECMA [Concomitant]
     Active Substance: IDECABTAGENE VICLEUCEL
     Indication: Product used for unknown indication
     Route: 065
     Dates: start: 20220929

REACTIONS (1)
  - Intentional product use issue [Unknown]
